FAERS Safety Report 4655277-4 (Version None)
Quarter: 2005Q2

REPORT INFORMATION
  Report Type: 
  Country: None (occurrence: None)
  Receive Date: 20050401
  Receipt Date: 20050224
  Transmission Date: 20051028
  Serious: No
  Sender: FDA-Public Use
  Company Number: SU-2005-003174

PATIENT
  Sex: Male

DRUGS (3)
  1. BENICAR HCT [Suspect]
     Indication: HYPERTENSION
     Dosage: MG QD PO
     Route: 048
  2. ZOCOR [Concomitant]
  3. HERBAL SUPPLEMENTS [Concomitant]

REACTIONS (1)
  - HEPATIC ENZYME INCREASED [None]
